FAERS Safety Report 7337324-4 (Version None)
Quarter: 2011Q1

REPORT INFORMATION
  Report Type: 
  Country: None (occurrence: None)
  Receive Date: 20110308
  Receipt Date: 20110302
  Transmission Date: 20110831
  Serious: Yes (Other)
  Sender: FDA-Public Use
  Company Number: GB-SANOFI-AVENTIS-2011SA012755

PATIENT
  Age: 73 Year
  Sex: Female

DRUGS (6)
  1. LACIDIPINE [Concomitant]
  2. ATENOLOL [Concomitant]
  3. LEVOTHYROXINE [Concomitant]
  4. ARTHROTEC [Concomitant]
  5. INDAPAMIDE [Suspect]
     Route: 065
  6. VALSARTAN [Concomitant]

REACTIONS (6)
  - VITAMIN D DEFICIENCY [None]
  - MYOPATHY [None]
  - HYPOPHOSPHATAEMIA [None]
  - HYPOCALCIURIA [None]
  - BLOOD CREATINE PHOSPHOKINASE INCREASED [None]
  - HYPERCALCAEMIA [None]
